FAERS Safety Report 4845832-0 (Version None)
Quarter: 2005Q4

REPORT INFORMATION
  Report Type: 
  Country: None (occurrence: None)
  Receive Date: 20051206
  Receipt Date: 20051114
  Transmission Date: 20060501
  Serious: Yes (Other)
  Sender: FDA-Public Use
  Company Number: US-GLAXOSMITHKLINE-A0582170A

PATIENT
  Age: 36 Year
  Sex: Female

DRUGS (3)
  1. PAXIL CR [Suspect]
     Indication: PANIC ATTACK
     Dosage: 12.5MG PER DAY
     Route: 048
  2. LAMICTAL [Concomitant]
  3. GEODON [Concomitant]

REACTIONS (3)
  - DYSPNOEA [None]
  - PRURITUS [None]
  - SPEECH DISORDER [None]
